FAERS Safety Report 5363742-X (Version None)
Quarter: 2007Q2

REPORT INFORMATION
  Report Type: 
  Country: None (occurrence: None)
  Receive Date: 20070618
  Receipt Date: 20070618
  Transmission Date: 20071010
  Serious: Yes (Other)
  Sender: FDA-Public Use
  Company Number: None

PATIENT
  Sex: Female
  Weight: 79.3795 kg

DRUGS (1)
  1. ABREVA [Suspect]
     Indication: ORAL HERPES
     Dosage: RUB SMALL AMOUNT ON SKIN 5X PER DAY TOP
     Route: 061
     Dates: start: 20070331, end: 20070402

REACTIONS (4)
  - HYPERSENSITIVITY [None]
  - LIP SWELLING [None]
  - SWELLING FACE [None]
  - URTICARIA [None]
